FAERS Safety Report 17522290 (Version 1)
Quarter: 2020Q1

REPORT INFORMATION
  Report Type: Spontaneous
  Country: US (occurrence: US)
  Receive Date: 20200310
  Receipt Date: 20200310
  Transmission Date: 20200409
  Serious: No
  Sender: FDA-Public Use
  Company Number: US-GALDERMA-US19058744

PATIENT
  Age: 63 Year
  Sex: Male

DRUGS (7)
  1. PROACTIV MD DAILY OIL CONTROL SPF 30 [Suspect]
     Active Substance: AVOBENZONE\OCTISALATE\OCTOCRYLENE
     Indication: ACNE
     Route: 061
     Dates: start: 201908, end: 20190908
  2. PROACTIV MD DEEP CLEANSING FACE WASH [Concomitant]
     Active Substance: COSMETICS
     Indication: ACNE
     Route: 061
     Dates: start: 201908, end: 20190908
  3. BENZOYL PEROXIDE. [Concomitant]
     Active Substance: BENZOYL PEROXIDE
     Indication: PRODUCT USED FOR UNKNOWN INDICATION
  4. LEVOTHYROXINE. [Concomitant]
     Active Substance: LEVOTHYROXINE
     Indication: HYPOTHYROIDISM
  5. PROACTIV MD ADAPALENE ACNE TREATMENT [Suspect]
     Active Substance: ADAPALENE
     Indication: ACNE
     Dosage: 0.1%
     Route: 061
     Dates: start: 201908, end: 20190908
  6. TETRACYCLINE [Concomitant]
     Active Substance: TETRACYCLINE
     Indication: ACNE
  7. AMLODIPINE [Concomitant]
     Active Substance: AMLODIPINE BESYLATE
     Indication: HYPERTENSION

REACTIONS (1)
  - Acne [Recovering/Resolving]

NARRATIVE: CASE EVENT DATE: 201908
